FAERS Safety Report 5651199-0 (Version None)
Quarter: 2008Q1

REPORT INFORMATION
  Report Type: 
  Country: None (occurrence: None)
  Receive Date: 20080131
  Receipt Date: 20071002
  Transmission Date: 20080703
  Serious: No
  Sender: FDA-Public Use
  Company Number: US200710000262

PATIENT
  Age: 62 Year
  Sex: Female
  Weight: 78.9 kg

DRUGS (7)
  1. BYETTA [Suspect]
     Indication: TYPE 2 DIABETES MELLITUS
     Dosage: 5 UG, 2/D, SUBCUTANEOUS
     Route: 058
     Dates: start: 20070601
  2. METFORMIN HCL [Concomitant]
  3. LIPITOR [Concomitant]
  4. SYNTHROID [Concomitant]
  5. MICARDIS [Concomitant]
  6. CLARINEX [Concomitant]
  7. ASPIRIN [Concomitant]

REACTIONS (2)
  - ANAEMIA [None]
  - BLOOD POTASSIUM INCREASED [None]
